FAERS Safety Report 15343345 (Version 1)
Quarter: 2018Q3

REPORT INFORMATION
  Report Type: Spontaneous
  Country: AU (occurrence: AU)
  Receive Date: 20180903
  Receipt Date: 20180903
  Transmission Date: 20181010
  Serious: Yes (Other)
  Sender: FDA-Public Use
  Company Number: AU-MACLEODS PHARMACEUTICALS US LTD-MAC2018016479

PATIENT

DRUGS (2)
  1. OLANZAPINE. [Suspect]
     Active Substance: OLANZAPINE
     Dosage: INCREASED TO 10 MILLIGRAM AFTER 2 DOSES
     Route: 065
  2. OLANZAPINE. [Suspect]
     Active Substance: OLANZAPINE
     Indication: PRODUCT USED FOR UNKNOWN INDICATION
     Dosage: 5 MILLIGRAM, AT NIGHT
     Route: 065

REACTIONS (4)
  - Delirium [Recovered/Resolved]
  - Drug ineffective [Unknown]
  - Agitation [Recovered/Resolved]
  - Hallucination [Recovered/Resolved]
